FAERS Safety Report 12250826 (Version 1)
Quarter: 2016Q2

REPORT INFORMATION
  Report Type: Spontaneous
  Country: US (occurrence: US)
  Receive Date: 20160410
  Receipt Date: 20160410
  Transmission Date: 20160815
  Serious: No
  Sender: FDA-Public Use
  Company Number: US-JNJFOC-20160315126

PATIENT
  Age: 56 Year
  Sex: Female
  Weight: 77.11 kg

DRUGS (4)
  1. ZYRTEC [Suspect]
     Active Substance: CETIRIZINE HYDROCHLORIDE
     Route: 048
  2. VITAMIN D [Concomitant]
     Active Substance: CHOLECALCIFEROL
     Indication: ROUTINE HEALTH MAINTENANCE
     Dosage: 1 YEAR
     Route: 065
  3. VITAMIN B [Concomitant]
     Active Substance: VITAMIN B
     Indication: ROUTINE HEALTH MAINTENANCE
     Dosage: 1 YEAR
     Route: 065
  4. ZYRTEC [Suspect]
     Active Substance: CETIRIZINE HYDROCHLORIDE
     Indication: MULTIPLE ALLERGIES
     Dosage: 1 TABLET
     Route: 048
     Dates: start: 20160220, end: 20160221

REACTIONS (4)
  - Euphoric mood [Recovered/Resolved]
  - Feeling abnormal [Recovered/Resolved]
  - Sedation [Recovered/Resolved]
  - Lethargy [Recovered/Resolved]

NARRATIVE: CASE EVENT DATE: 20160220
